FAERS Safety Report 9665873 (Version 1)
Quarter: 2013Q4

REPORT INFORMATION
  Report Type: Spontaneous
  Country: US (occurrence: None)
  Receive Date: 20131101
  Receipt Date: 20131101
  Transmission Date: 20140711
  Serious: Yes (Disabling, Other)
  Sender: FDA-Public Use
  Company Number: None

PATIENT
  Age: 3 Year
  Sex: Male
  Weight: 13.15 kg

DRUGS (1)
  1. ALBUTEROL SULFATE [Suspect]
     Indication: CROUP INFECTIOUS
     Dosage: 1 VIAL
     Route: 055
     Dates: end: 20131005

REACTIONS (2)
  - Nervous system disorder [None]
  - Abnormal behaviour [None]
